FAERS Safety Report 12678470 (Version 3)
Quarter: 2016Q4

REPORT INFORMATION
  Report Type: Spontaneous
  Country: US (occurrence: US)
  Receive Date: 20160823
  Receipt Date: 20161003
  Transmission Date: 20170207
  Serious: Yes (Other)
  Sender: FDA-Public Use
  Company Number: US-ALLERGAN-1666491US

PATIENT
  Age: 68 Year
  Sex: Female
  Weight: 54 kg

DRUGS (3)
  1. NORCO [Suspect]
     Active Substance: ACETAMINOPHEN\HYDROCODONE BITARTRATE
     Indication: PAIN
     Dosage: 1 DF, BID
     Route: 048
     Dates: start: 2008
  2. LYRICA [Suspect]
     Active Substance: PREGABALIN
     Indication: NEUROPATHY PERIPHERAL
  3. LYRICA [Suspect]
     Active Substance: PREGABALIN
     Indication: FIBROMYALGIA
     Dosage: 100 MG
     Route: 048
     Dates: start: 2008

REACTIONS (13)
  - Muscle spasticity [Unknown]
  - Hypoaesthesia [Unknown]
  - Burning sensation [Unknown]
  - Weight fluctuation [Unknown]
  - Balance disorder [Unknown]
  - Bone pain [Unknown]
  - Discomfort [Unknown]
  - Compression fracture [Not Recovered/Not Resolved]
  - Pain [Unknown]
  - Sleep disorder [Unknown]
  - Coma [Unknown]
  - Staphylococcal infection [Unknown]
  - Spinal column injury [Unknown]

NARRATIVE: CASE EVENT DATE: 2012
